FAERS Safety Report 6104168-0 (Version None)
Quarter: 2009Q1

REPORT INFORMATION
  Report Type: 
  Country: None (occurrence: None)
  Receive Date: 20090227
  Receipt Date: 20090211
  Transmission Date: 20090719
  Serious: Yes (Other)
  Sender: FDA-Public Use
  Company Number: 8043168

PATIENT
  Age: 14 Year
  Sex: Female

DRUGS (1)
  1. METHYLPHENIDATE HCL [Suspect]
     Dosage: 3 DF/D PO
     Route: 048
     Dates: start: 20090211

REACTIONS (1)
  - INCORRECT DOSE ADMINISTERED [None]
